FAERS Safety Report 6645262-5 (Version None)
Quarter: 2010Q1

REPORT INFORMATION
  Report Type: 
  Country: None (occurrence: None)
  Receive Date: 20100322
  Receipt Date: 20100311
  Transmission Date: 20100710
  Serious: Yes (Other)
  Sender: FDA-Public Use
  Company Number: PHHY2010JP15257

PATIENT
  Sex: Female

DRUGS (2)
  1. NEORAL [Suspect]
     Indication: GASTROINTESTINAL NEOPLASM
     Route: 048
  2. NEORAL [Suspect]
     Indication: AUTOIMMUNE DISORDER

REACTIONS (1)
  - ILEUS [None]
